FAERS Safety Report 7562762-4 (Version None)
Quarter: 2011Q2

REPORT INFORMATION
  Report Type: 
  Country: None (occurrence: None)
  Receive Date: 20110622
  Receipt Date: 20110620
  Transmission Date: 20111010
  Serious: Yes (Other)
  Sender: FDA-Public Use
  Company Number: DE-PFIZER INC-2011135191

PATIENT
  Age: 43 Year
  Sex: Female

DRUGS (1)
  1. ZOLOFT [Suspect]

REACTIONS (1)
  - THYROID FUNCTION TEST ABNORMAL [None]
